FAERS Safety Report 12799166 (Version 16)
Quarter: 2020Q3

REPORT INFORMATION
  Report Type: Report from Study
  Country: ZA (occurrence: ZA)
  Receive Date: 20160930
  Receipt Date: 20200916
  Transmission Date: 20201104
  Serious: Yes (Hospitalization, Other)
  Sender: FDA-Public Use
  Company Number: PHHY2016ZA133890

PATIENT
  Sex: Male
  Weight: 60 kg

DRUGS (10)
  1. DESFERAL [Suspect]
     Active Substance: DEFEROXAMINE MESYLATE
     Indication: THALASSAEMIA
     Dosage: UNK (7 VIALS FOR 7 DAYS)
     Route: 065
     Dates: start: 1982
  2. EXJADE [Suspect]
     Active Substance: DEFERASIROX
     Indication: THALASSAEMIA
     Dosage: 1750 MG, QD (5 WEEKS AGO)
     Route: 048
     Dates: start: 201808
  3. AMOXILLIN [Concomitant]
     Active Substance: AMOXICILLIN
     Indication: PRODUCT USED FOR UNKNOWN INDICATION
     Dosage: 250 MG, BID
     Route: 065
  4. EXJADE [Suspect]
     Active Substance: DEFERASIROX
     Dosage: 1750 MG, QD
     Route: 048
  5. DESFERAL [Suspect]
     Active Substance: DEFEROXAMINE MESYLATE
     Dosage: 6 DF (VIALS), 3 X PER WEEK
     Route: 065
  6. FERIPROX [Suspect]
     Active Substance: DEFERIPRONE
     Dosage: 4 DF, QD
     Route: 065
  7. DESFERAL [Suspect]
     Active Substance: DEFEROXAMINE MESYLATE
     Dosage: 6 DF, BIW (6 VIALS 2X WEEKLY VIA SYRINGE PUMP)
     Route: 065
  8. DESFERAL [Suspect]
     Active Substance: DEFEROXAMINE MESYLATE
     Dosage: 6 DF, BIW (6 VIALS 2 X WEEK)
     Route: 065
     Dates: start: 1982
  9. LOSEC [Concomitant]
     Active Substance: OMEPRAZOLE
     Indication: PRODUCT USED FOR UNKNOWN INDICATION
     Dosage: UNK, QD
     Route: 065
  10. FERIPROX [Suspect]
     Active Substance: DEFERIPRONE
     Indication: IRON OVERLOAD
     Dosage: 4.5 G, QD (9 TABLETS A DAY)
     Route: 065

REACTIONS (6)
  - Serum ferritin increased [Unknown]
  - Product use issue [Unknown]
  - Nephrolithiasis [Recovered/Resolved]
  - Joint dislocation [Unknown]
  - Pain [Unknown]
  - Diarrhoea [Unknown]

NARRATIVE: CASE EVENT DATE: 2013
